FAERS Safety Report 19896037 (Version 7)
Quarter: 2021Q4

REPORT INFORMATION
  Report Type: Report from Study
  Country: DE (occurrence: DE)
  Receive Date: 20210929
  Receipt Date: 20211229
  Transmission Date: 20220303
  Serious: Yes (Hospitalization, Other)
  Sender: FDA-Public Use
  Company Number: DE-002147023-NVSC2021DE061677

PATIENT
  Sex: Female
  Weight: 74 kg

DRUGS (6)
  1. LETROZOLE [Suspect]
     Active Substance: LETROZOLE
     Indication: Breast cancer metastatic
     Dosage: 2.5 MILLIGRAM, QD
     Route: 048
     Dates: start: 20200415
  2. LETROZOLE [Suspect]
     Active Substance: LETROZOLE
     Dosage: 2.5 MILLIGRAM, QD
     Route: 048
     Dates: start: 20210210
  3. KISQALI [Suspect]
     Active Substance: RIBOCICLIB
     Indication: Breast cancer metastatic
     Dosage: 600 MILLIGRAM ( (ADMINISTRATION SCHEME 21 DAYS INTAKE, 7 DAYS PAUSE))
     Route: 048
     Dates: start: 20200504, end: 20200529
  4. KISQALI [Suspect]
     Active Substance: RIBOCICLIB
     Dosage: 400 MILLIGRAM ( (ADMINISTRATION SCHEME 21 DAYS INTAKE, 7 DAYS PAUSE))
     Route: 048
     Dates: start: 20200608
  5. KISQALI [Suspect]
     Active Substance: RIBOCICLIB
     Dosage: 600 MILLIGRAM ( (ADMINISTRATION SCHEME 21 DAYS INTAKE, 7 DAYS PAUSE))
     Route: 048
     Dates: start: 20210210, end: 20210622
  6. KISQALI [Suspect]
     Active Substance: RIBOCICLIB
     Dosage: 600 MILLIGRAM ((ADMINISTRATION SCHEME 21 DAYS INTAKE, 7 DAYS PAUSE))
     Route: 048
     Dates: start: 20210707

REACTIONS (10)
  - General physical condition abnormal [Recovered/Resolved]
  - Neuropathy peripheral [Recovered/Resolved]
  - Visual impairment [Not Recovered/Not Resolved]
  - Fatigue [Not Recovered/Not Resolved]
  - Alopecia [Not Recovered/Not Resolved]
  - Arthralgia [Not Recovered/Not Resolved]
  - Stomatitis [Recovered/Resolved]
  - Breast pain [Recovered/Resolved]
  - Conjunctivitis [Not Recovered/Not Resolved]
  - Hot flush [Not Recovered/Not Resolved]

NARRATIVE: CASE EVENT DATE: 20210215
